FAERS Safety Report 8065144-4 (Version None)
Quarter: 2012Q1

REPORT INFORMATION
  Report Type: 
  Country: None (occurrence: None)
  Receive Date: 20120117
  Receipt Date: 20120109
  Transmission Date: 20120608
  Serious: Yes (Other)
  Sender: FDA-Public Use
  Company Number: DAV-AE-GEM-12-01

PATIENT
  Age: 55 Year
  Sex: Male

DRUGS (1)
  1. GEMFIBROZIL [Suspect]
     Indication: HYPERTRIGLYCERIDAEMIA
     Dosage: 600 MG. 2X/DAY

REACTIONS (3)
  - CHOLELITHIASIS [None]
  - HEPATITIS CHOLESTATIC [None]
  - HEPATIC STEATOSIS [None]
